FAERS Safety Report 11225128 (Version 2)
Quarter: 2015Q3

REPORT INFORMATION
  Report Type: Spontaneous
  Country: US (occurrence: None)
  Receive Date: 20150625
  Receipt Date: 20150728
  Transmission Date: 20151125
  Serious: Yes (Hospitalization)
  Sender: FDA-Public Use
  Company Number: US-002061

PATIENT
  Sex: Female

DRUGS (2)
  1. GATTEX [Suspect]
     Active Substance: TEDUGLUTIDE\WATER
     Indication: SHORT-BOWEL SYNDROME
     Dosage: (DF SUBCUTANEOUS)
     Route: 058
     Dates: start: 20150410
  2. SOLUTIONS FOR PARENTERAL NUTRITION [Concomitant]
     Active Substance: AMINO ACIDS\DEXTROSE\ELECTROLYTES NOS

REACTIONS (7)
  - Dyskinesia [None]
  - Skin warm [None]
  - Incoherent [None]
  - Drug dose omission [None]
  - Blood urea increased [None]
  - Hypersomnia [None]
  - Renal impairment [None]
